FAERS Safety Report 5369889-6 (Version None)
Quarter: 2007Q2

REPORT INFORMATION
  Report Type: 
  Country: None (occurrence: None)
  Receive Date: 20070621
  Receipt Date: 20070611
  Transmission Date: 20071010
  Serious: Yes (Life-Threatening, Hospitalization, Other)
  Sender: FDA-Public Use
  Company Number: 430004L07ISR

PATIENT
  Age: 51 Year
  Sex: Female

DRUGS (3)
  1. MITOXANTRONE HCL [Suspect]
     Indication: ACUTE PROMYELOCYTIC LEUKAEMIA
  2. ARSENIC TRIOXIDE [Suspect]
     Indication: ACUTE PROMYELOCYTIC LEUKAEMIA
  3. DAUNORUBICIN HCL [Suspect]
     Indication: ACUTE PROMYELOCYTIC LEUKAEMIA

REACTIONS (2)
  - CARDIOMYOPATHY [None]
  - TORSADE DE POINTES [None]
